FAERS Safety Report 8409641-8 (Version None)
Quarter: 2012Q2

REPORT INFORMATION
  Report Type: 
  Country: None (occurrence: None)
  Receive Date: 20120529
  Receipt Date: 20120518
  Transmission Date: 20120825
  Serious: Yes (Other)
  Sender: FDA-Public Use
  Company Number: AUR-APL-2012-02355

PATIENT
  Age: 38 Year
  Sex: Female

DRUGS (5)
  1. CLONAZEPAM [Suspect]
     Indication: HEADACHE
  2. BUPROPION HCL [Concomitant]
  3. VENLAVAXINE (VENLAVAXINE) [Concomitant]
  4. ZOLPIDEM [Suspect]
     Indication: HEADACHE
  5. ALPRAZOLAM [Suspect]
     Indication: HEADACHE
     Dosage: ORAL
     Route: 048

REACTIONS (7)
  - FEELING DRUNK [None]
  - BALANCE DISORDER [None]
  - AMNESIA [None]
  - INADEQUATE ANALGESIA [None]
  - PARASOMNIA [None]
  - AUTOMATISM [None]
  - CLUMSINESS [None]
